FAERS Safety Report 7967491-0 (Version None)
Quarter: 2011Q4

REPORT INFORMATION
  Report Type: 
  Country: None (occurrence: None)
  Receive Date: 20111122
  Receipt Date: 20110819
  Transmission Date: 20120403
  Serious: No
  Sender: FDA-Public Use
  Company Number: PHHY2011US55255

PATIENT
  Age: 53 Year
  Sex: Female
  Weight: 108.8633 kg

DRUGS (10)
  1. METHYLPHENIDATE (METHYLPHENIDATE) TABLET [Concomitant]
  2. ASPIRIN [Concomitant]
  3. GILENYA [Suspect]
     Dosage: 0.5 MG, QD, ORAL
     Route: 048
     Dates: start: 20110401
  4. TRAMADOL HYDROCHLORIDE (TRAMADOL HYDROCHLORIDE) TABLET [Concomitant]
  5. FISH OIL (FISH OIL) CAPSULE [Concomitant]
  6. RANITIDINE (RANITIDINE) CAPSULE [Concomitant]
  7. FAMPRIDINE (FAMPRIDINE) TABLET [Concomitant]
  8. MULTIVITAMIN (VITAMINS NOS) CAPSULE [Concomitant]
  9. CALCIUM (CALCIUM) TABLET [Concomitant]
  10. VITAMIN D (ERGOCALCIFEROL) CAPSULE [Concomitant]

REACTIONS (1)
  - RASH [None]
